FAERS Safety Report 6443539-X (Version None)
Quarter: 2009Q4

REPORT INFORMATION
  Report Type: 
  Country: None (occurrence: None)
  Receive Date: 20091112
  Receipt Date: 20091028
  Transmission Date: 20100525
  Serious: Yes (Life-Threatening, Hospitalization)
  Sender: FDA-Public Use
  Company Number: 2009SP002952

PATIENT
  Sex: Female

DRUGS (1)
  1. OMNARIS NASAL SPRAY (CICLESONIDE AQ) (50 UG) [Suspect]
     Dosage: NASAL
     Route: 045

REACTIONS (1)
  - DRUG HYPERSENSITIVITY [None]
